FAERS Safety Report 22372998 (Version 1)
Quarter: 2023Q2

REPORT INFORMATION
  Report Type: Report from Study
  Country: US (occurrence: US)
  Receive Date: 20230526
  Receipt Date: 20230526
  Transmission Date: 20230722
  Serious: Yes (Other)
  Sender: FDA-Public Use
  Company Number: US-PFIZER INC-US-GBT-022024

PATIENT
  Age: 54 Year
  Sex: Male

DRUGS (2)
  1. OXBRYTA [Suspect]
     Active Substance: VOXELOTOR
     Indication: Sickle cell disease
     Dosage: 1500 MG, DAILY
     Route: 048
     Dates: start: 20210505
  2. OXBRYTA [Suspect]
     Active Substance: VOXELOTOR
     Indication: Sickle cell anaemia with crisis

REACTIONS (2)
  - Sickle cell anaemia with crisis [Recovered/Resolved]
  - Diarrhoea [Not Recovered/Not Resolved]
